FAERS Safety Report 6911701-5 (Version None)
Quarter: 2010Q3

REPORT INFORMATION
  Report Type: 
  Country: None (occurrence: None)
  Receive Date: 20100806
  Receipt Date: 20100802
  Transmission Date: 20110219
  Serious: Yes (Hospitalization)
  Sender: FDA-Public Use
  Company Number: RU-BAYER-201034618GPV

PATIENT
  Age: 60 Year
  Sex: Male

DRUGS (3)
  1. OSMO-ADALAT [Suspect]
     Indication: HYPERTENSION
     Route: 048
     Dates: start: 19970101
  2. BETALOC ZOK [Concomitant]
     Dosage: TOTAL DAILY DOSE: 50 MG
     Route: 048
     Dates: start: 20080101
  3. ENALAPRIL [Concomitant]
     Dosage: TOTAL DAILY DOSE: 20 MG
     Route: 048

REACTIONS (1)
  - BLOOD PRESSURE INCREASED [None]
